FAERS Safety Report 21519073 (Version 12)
Quarter: 2023Q4

REPORT INFORMATION
  Report Type: Report from Study
  Country: US (occurrence: US)
  Receive Date: 20221028
  Receipt Date: 20231220
  Transmission Date: 20240110
  Serious: Yes (Other)
  Sender: FDA-Public Use
  Company Number: US-002147023-NVSC2022US242327

PATIENT
  Age: 63 Year
  Sex: Female

DRUGS (1)
  1. KESIMPTA [Suspect]
     Active Substance: OFATUMUMAB
     Indication: Product used for unknown indication
     Dosage: 20 MG, QMO
     Route: 058
     Dates: start: 20220928

REACTIONS (12)
  - Hemiparesis [Unknown]
  - Blood pressure increased [Recovered/Resolved]
  - Illness [Unknown]
  - Somnolence [Unknown]
  - Condition aggravated [Recovered/Resolved]
  - Trigeminal neuralgia [Recovered/Resolved]
  - Dyspnoea [Unknown]
  - Herpes zoster [Recovered/Resolved]
  - Fatigue [Not Recovered/Not Resolved]
  - Hypoaesthesia [Unknown]
  - Drug hypersensitivity [Unknown]
  - Cough [Unknown]

NARRATIVE: CASE EVENT DATE: 20220928
